FAERS Safety Report 22232305 (Version 1)
Quarter: 2023Q2

REPORT INFORMATION
  Report Type: Spontaneous
  Country: US (occurrence: None)
  Receive Date: 20230420
  Receipt Date: 20230420
  Transmission Date: 20230721
  Serious: No
  Sender: FDA-Public Use
  Company Number: US-ROCHE-3082752

PATIENT
  Sex: Male

DRUGS (1)
  1. ESBRIET [Suspect]
     Active Substance: PIRFENIDONE
     Indication: Interstitial lung disease
     Dosage: 1 TABLET 3 TIMES DAILY FOR 7 DAYS, 2 TABLETS 3 TIMES DAILY FOR ANOTHER 7 DAYS, 3 TABLETS 3  TIMES DA
     Route: 048
     Dates: start: 20220121

REACTIONS (3)
  - Diarrhoea [Unknown]
  - Depression [Unknown]
  - Musculoskeletal chest pain [Unknown]
